FAERS Safety Report 7531439-3 (Version None)
Quarter: 2011Q2

REPORT INFORMATION
  Report Type: 
  Country: None (occurrence: None)
  Receive Date: 20110608
  Receipt Date: 20110606
  Transmission Date: 20111010
  Serious: Yes (Hospitalization)
  Sender: FDA-Public Use
  Company Number: IT-BRISTOL-MYERS SQUIBB COMPANY-15387921

PATIENT
  Age: 39 Year
  Sex: Female

DRUGS (6)
  1. RISPERDAL [Concomitant]
  2. HALOPERIDOL [Concomitant]
     Route: 048
  3. OLANZAPINE [Concomitant]
  4. EUTIROX [Concomitant]
  5. ABILIFY [Suspect]
     Indication: PSYCHOTIC DISORDER
     Dosage: FOR FEW MONTHS
     Route: 048
     Dates: start: 20100415, end: 20101124
  6. DISIPAL [Concomitant]
     Dosage: DISIPAL 50 MG TABS
     Route: 048
     Dates: start: 20090609, end: 20100609

REACTIONS (2)
  - DEEP VEIN THROMBOSIS [None]
  - FOCAL NODULAR HYPERPLASIA [None]
